FAERS Safety Report 18219242 (Version 1)
Quarter: 2020Q3

REPORT INFORMATION
  Report Type: Spontaneous
  Country: DE (occurrence: DE)
  Receive Date: 20200901
  Receipt Date: 20200901
  Transmission Date: 20201103
  Serious: Yes (Hospitalization, Other)
  Sender: FDA-Public Use
  Company Number: DE-AMGEN-DEUNI2020136891

PATIENT
  Sex: Female
  Weight: 104 kg

DRUGS (1)
  1. ADALIMUMAB [Suspect]
     Active Substance: ADALIMUMAB
     Indication: PRODUCT USED FOR UNKNOWN INDICATION
     Dosage: 40 MILLIGRAM, Q2WK
     Route: 058
     Dates: start: 20160705

REACTIONS (8)
  - Weight increased [Unknown]
  - Myocardial infarction [Recovered/Resolved]
  - Dyspnoea [Unknown]
  - Infection [Unknown]
  - Proteinuria [Unknown]
  - Stress [Unknown]
  - Cough [Unknown]
  - Oedema peripheral [Unknown]

NARRATIVE: CASE EVENT DATE: 20200401
